FAERS Safety Report 4746427-X (Version None)
Quarter: 2005Q3

REPORT INFORMATION
  Report Type: 
  Country: None (occurrence: None)
  Receive Date: 20050816
  Receipt Date: 20050816
  Transmission Date: 20060218
  Serious: Yes (Other)
  Sender: FDA-Public Use
  Company Number: None

PATIENT
  Age: 30 Year
  Sex: Female
  Weight: 68.4932 kg

DRUGS (2)
  1. METHYLPHENIDATE (GENERIC) [Suspect]
     Indication: CATAPLEXY
     Dosage: 20 MG TID TO QID
     Dates: start: 20040101
  2. METHYLPHENIDATE (GENERIC) [Suspect]
     Indication: NARCOLEPSY
     Dosage: 20 MG TID TO QID
     Dates: start: 20040101

REACTIONS (3)
  - ANXIETY [None]
  - DRUG EFFECT DECREASED [None]
  - HEADACHE [None]
